FAERS Safety Report 4422116-6 (Version None)
Quarter: 2004Q3

REPORT INFORMATION
  Report Type: 
  Country: None (occurrence: None)
  Receive Date: 20040712
  Receipt Date: 20030506
  Transmission Date: 20050211
  Serious: Yes (Hospitalization, Disabling)
  Sender: FDA-Public Use
  Company Number: TAP2003Q00636

PATIENT
  Age: 57 Year
  Sex: Male
  Weight: 87.0906 kg

DRUGS (9)
  1. PREVACID [Suspect]
     Indication: GASTRIC ULCER HAEMORRHAGE
     Dosage: 30 MG, 1 IN 1 D, ORAL
     Route: 048
     Dates: start: 20020101, end: 20030318
  2. EFFEXOR [Concomitant]
  3. VALIUM [Concomitant]
  4. ULTRAM [Concomitant]
  5. INDUR [SIC] (LINCTIFIED EXPECTORANT) [Concomitant]
  6. LIPITOR [Concomitant]
  7. MAXZIDE [Concomitant]
  8. PLAVIX [Concomitant]
  9. VITAMINS (VITAMINS) [Concomitant]

REACTIONS (5)
  - ANOREXIA [None]
  - DRY MOUTH [None]
  - NAUSEA [None]
  - STOMACH DISCOMFORT [None]
  - WEIGHT DECREASED [None]
